FAERS Safety Report 14626145 (Version 4)
Quarter: 2018Q1

REPORT INFORMATION
  Report Type: Spontaneous
  Country: FR (occurrence: FR)
  Receive Date: 20180312
  Receipt Date: 20180326
  Transmission Date: 20180509
  Serious: Yes (Hospitalization)
  Sender: FDA-Public Use
  Company Number: FR-PFIZER INC-2018099661

PATIENT
  Age: 66 Year
  Sex: Male

DRUGS (25)
  1. OFLOCET [Suspect]
     Active Substance: OFLOXACIN
     Indication: URINARY TRACT INFECTION
     Dosage: UNK
     Route: 048
     Dates: start: 20180109, end: 20180116
  2. ETANERCEPT [Concomitant]
     Active Substance: ETANERCEPT
     Dosage: UNK
     Dates: end: 201803
  3. OXYCODONE [Concomitant]
     Active Substance: OXYCODONE
     Dosage: 5 MG, EVERY 4 HRS
  4. POLYETHYLENE GLYCOL [Concomitant]
     Active Substance: POLYETHYLENE GLYCOLS
  5. TAZOCILLINE [Suspect]
     Active Substance: PIPERACILLIN SODIUM\TAZOBACTAM SODIUM
     Indication: INTERVERTEBRAL DISCITIS
     Dosage: 4G/500MG: 3 DF 1X/DAY
     Route: 042
     Dates: start: 20180121, end: 20180128
  6. RIFADINE [Suspect]
     Active Substance: RIFAMPIN
     Indication: INTERVERTEBRAL DISCITIS
     Dosage: 1200 MG, QD
     Route: 048
     Dates: start: 20180129, end: 20180207
  7. DILTIAZEM. [Concomitant]
     Active Substance: DILTIAZEM
     Dosage: 200 MG, 1X/DAY
  8. CALCIPARINE [Suspect]
     Active Substance: HEPARIN CALCIUM
     Indication: EMBOLISM VENOUS
     Dosage: 20000 IU, UNK
     Route: 058
     Dates: start: 20180214
  9. LASILIX SPECIAL [Suspect]
     Active Substance: FUROSEMIDE
     Indication: INTERVERTEBRAL DISCITIS
     Dosage: 80 MG, QD
     Route: 042
     Dates: start: 20180203, end: 20180205
  10. OMEPRAZOLE. [Concomitant]
     Active Substance: OMEPRAZOLE
  11. HEPARINE SODIUM PANPHARMA [Suspect]
     Active Substance: HEPARIN SODIUM
     Indication: EMBOLISM VENOUS
     Dosage: 60000 IU, QD
     Route: 058
     Dates: start: 20180129, end: 20180214
  12. MOVICOL [Suspect]
     Active Substance: POLYETHYLENE GLYCOL 3350\POTASSIUM CHLORIDE\SODIUM BICARBONATE\SODIUM CHLORIDE
     Indication: CONSTIPATION
     Dosage: 10 G, QD
     Route: 048
     Dates: end: 20180214
  13. DUOTRAV [Suspect]
     Active Substance: TIMOLOL MALEATE\TRAVOPROST
     Indication: GLAUCOMA
     Dosage: 2 GTT, QD
     Route: 047
     Dates: start: 20180122, end: 20180214
  14. TAVANIC [Suspect]
     Active Substance: LEVOFLOXACIN
     Indication: INTERVERTEBRAL DISCITIS
     Dosage: 1000 MG, QD
     Route: 048
     Dates: start: 20180129, end: 20180205
  15. LEVOTHYROX [Concomitant]
     Active Substance: LEVOTHYROXINE
     Dosage: 100 UG, UNK
  16. PREDNISONE. [Concomitant]
     Active Substance: PREDNISONE
     Dosage: 10 MG, 1X/DAY
  17. PANTOPRAZOLE [Suspect]
     Active Substance: PANTOPRAZOLE
     Indication: GASTROINTESTINAL HAEMORRHAGE
     Dosage: 8 MG, Q1HR
     Route: 042
     Dates: start: 20180202, end: 20180205
  18. VANCOMYCINE SANDOZ [Suspect]
     Active Substance: VANCOMYCIN
     Indication: INTERVERTEBRAL DISCITIS
     Dosage: 3500 MG, QD
     Route: 048
     Dates: start: 20180121, end: 20180124
  19. ERYTHROMYCINE [Suspect]
     Active Substance: ERYTHROMYCIN
     Indication: INTERVERTEBRAL DISCITIS
     Dosage: 250 MG, UNK
     Route: 042
     Dates: start: 20180202, end: 20180202
  20. LOVENOX [Suspect]
     Active Substance: ENOXAPARIN SODIUM
     Indication: EMBOLISM VENOUS
     Dosage: 4000 IU, UNK
     Route: 058
     Dates: start: 20180118, end: 20180129
  21. VALSARTAN. [Concomitant]
     Active Substance: VALSARTAN
     Dosage: 80 MG, 1X/DAY
  22. OXYCODONE [Concomitant]
     Active Substance: OXYCODONE
     Dosage: 40 MG, 2X/DAY
  23. LEFLUNOMIDE. [Concomitant]
     Active Substance: LEFLUNOMIDE
     Dosage: 20 MG, 1X/DAY
  24. ATORVASTATINE /01326101/ [Concomitant]
     Active Substance: ATORVASTATIN
     Dosage: 10 MG, 1X/DAY
  25. SILODOSINE [Concomitant]
     Active Substance: SILODOSIN
     Dosage: 8 MG, 1X/DAY

REACTIONS (1)
  - Drug reaction with eosinophilia and systemic symptoms [Not Recovered/Not Resolved]

NARRATIVE: CASE EVENT DATE: 20180126
